FAERS Safety Report 23229920 (Version 1)
Quarter: 2023Q4

REPORT INFORMATION
  Report Type: Spontaneous
  Country: DZ (occurrence: DZ)
  Receive Date: 20231127
  Receipt Date: 20231127
  Transmission Date: 20240110
  Serious: Yes (Other)
  Sender: FDA-Public Use
  Company Number: DZ-STRIDES ARCOLAB LIMITED-2023SP017445

PATIENT
  Age: 12 Year
  Sex: Female

DRUGS (4)
  1. PREDNISOLONE [Suspect]
     Active Substance: PREDNISOLONE
     Indication: Still^s disease
     Dosage: UNK (}0.5 MG/KG/DAY)
     Route: 065
  2. METHOTREXATE [Suspect]
     Active Substance: METHOTREXATE
     Indication: Still^s disease
     Dosage: 12 MILLIGRAM/SQ. METER (EVERY 1 WEEK)
     Route: 065
  3. CYCLOSPORINE [Suspect]
     Active Substance: CYCLOSPORINE
     Indication: Still^s disease
     Dosage: UNK
     Route: 065
  4. ANAKINRA [Concomitant]
     Active Substance: ANAKINRA
     Indication: Still^s disease
     Dosage: 2 MILLIGRAM/KILOGRAM PER DAY
     Route: 065

REACTIONS (5)
  - Skin striae [Unknown]
  - Cushingoid [Unknown]
  - Cataract [Unknown]
  - Therapy non-responder [Unknown]
  - Off label use [Unknown]
